FAERS Safety Report 8325104-2 (Version None)
Quarter: 2012Q2

REPORT INFORMATION
  Report Type: 
  Country: None (occurrence: None)
  Receive Date: 20120501
  Receipt Date: 20120425
  Transmission Date: 20120825
  Serious: Yes (Other)
  Sender: FDA-Public Use
  Company Number: NO-PFIZER INC-2012102063

PATIENT
  Age: 55 Year
  Sex: Female

DRUGS (7)
  1. PALEXIA DEPOT DEPOTTABLET [Suspect]
     Dosage: 200 MG, 1/DAY
     Route: 048
     Dates: start: 20120217
  2. BUPRENORPHINE [Concomitant]
     Indication: PRODUCT USED FOR UNKNOWN INDICATION
     Dosage: 5 MCG, 1/HR
     Route: 062
  3. PALEXIA DEPOT DEPOTTABLET [Suspect]
     Indication: FACIAL PAIN
     Dosage: 100 MG, 2/DAY
     Route: 048
     Dates: start: 20111202, end: 20111215
  4. PALEXIA DEPOT DEPOTTABLET [Suspect]
     Dosage: 200 MG, 3/DAY
     Route: 048
     Dates: start: 20111215, end: 20120117
  5. PREDNISOLONE [Concomitant]
     Indication: PRODUCT USED FOR UNKNOWN INDICATION
     Dosage: 17.5 MG, 1/DAY
     Route: 048
  6. NEURONTIN [Suspect]
     Dosage: 600 MG, 3/DAY
     Route: 048
  7. AMITRIPTYLINE HCL [Concomitant]
     Indication: PRODUCT USED FOR UNKNOWN INDICATION
     Dosage: 50 MG, 1/DAY
     Route: 048

REACTIONS (1)
  - SEROTONIN SYNDROME [None]
